FAERS Safety Report 4873804-9 (Version None)
Quarter: 2006Q1

REPORT INFORMATION
  Report Type: 
  Country: None (occurrence: None)
  Receive Date: 20060104
  Receipt Date: 20051227
  Transmission Date: 20060701
  Serious: Yes (Hospitalization)
  Sender: FDA-Public Use
  Company Number: KII-2005-0020383

PATIENT
  Age: 20 Month
  Sex: Male

DRUGS (4)
  1. OXYCONTIN [Suspect]
     Indication: ACCIDENTAL EXPOSURE
     Dosage: ORAL
     Route: 048
     Dates: start: 20051202, end: 20051202
  2. PROPRANOLOL [Suspect]
     Indication: ACCIDENTAL EXPOSURE
     Dosage: ORAL
     Route: 048
     Dates: start: 20051202, end: 20051202
  3. SSRI () [Suspect]
     Indication: ACCIDENTAL EXPOSURE
     Dosage: ORAL
     Route: 048
     Dates: start: 20051202, end: 20051202
  4. SERUMLIPIDREDUCING AGENTS() [Suspect]
     Indication: ACCIDENTAL EXPOSURE
     Dosage: ORAL
     Route: 048
     Dates: start: 20051202, end: 20051202

REACTIONS (2)
  - ACCIDENTAL DRUG INTAKE BY CHILD [None]
  - LETHARGY [None]
